FAERS Safety Report 7342141-5 (Version None)
Quarter: 2011Q1

REPORT INFORMATION
  Report Type: 
  Country: None (occurrence: None)
  Receive Date: 20110309
  Receipt Date: 20110304
  Transmission Date: 20110831
  Serious: Yes (Hospitalization, Disabling)
  Sender: FDA-Public Use
  Company Number: US-MERCK-1101USA03049

PATIENT
  Age: 89 Year
  Sex: Female

DRUGS (1)
  1. FOSAMAX [Suspect]
     Indication: BONE DENSITY INCREASED
     Route: 048

REACTIONS (4)
  - HIP FRACTURE [None]
  - LOWER LIMB FRACTURE [None]
  - FALL [None]
  - SPINAL FRACTURE [None]
